FAERS Safety Report 6178783-2 (Version None)
Quarter: 2009Q2

REPORT INFORMATION
  Report Type: 
  Country: None (occurrence: None)
  Receive Date: 20090504
  Receipt Date: 20090225
  Transmission Date: 20091009
  Serious: No
  Sender: FDA-Public Use
  Company Number: US-ALEXION-A200900153

PATIENT
  Sex: Female

DRUGS (5)
  1. SOLIRIS [Suspect]
     Indication: PAROXYSMAL NOCTURNAL HAEMOGLOBINURIA
     Dosage: 900 MG, Q2WK
  2. LISINOPRIL [Concomitant]
     Indication: BLOOD PRESSURE
     Dosage: UNK
  3. PROPRANOLOL [Concomitant]
     Indication: BLOOD PRESSURE
     Dosage: UNK
  4. VERAPAMIL [Concomitant]
     Indication: BLOOD PRESSURE
     Dosage: UNK
  5. TEKTURNA [Concomitant]
     Indication: BLOOD PRESSURE
     Dosage: UNK

REACTIONS (2)
  - BLOOD PRESSURE INCREASED [None]
  - HEADACHE [None]
